FAERS Safety Report 4971760-6 (Version None)
Quarter: 2006Q2

REPORT INFORMATION
  Report Type: 
  Country: None (occurrence: None)
  Receive Date: 20060407
  Receipt Date: 20060320
  Transmission Date: 20061013
  Serious: Yes (Hospitalization)
  Sender: FDA-Public Use
  Company Number: PAR_0570_2006

PATIENT
  Age: 13 Year
  Sex: Male

DRUGS (2)
  1. IBUPROFEN [Suspect]
     Indication: FRACTURE
     Dosage: 800 MG QDAY
  2. DIPYRONE INJ [Suspect]
     Indication: FRACTURE
     Dosage: 1000 MG QDAY

REACTIONS (4)
  - ABDOMINAL PAIN [None]
  - FLUID INTAKE REDUCED [None]
  - RENAL FAILURE ACUTE [None]
  - VOMITING [None]
